FAERS Safety Report 15185041 (Version 5)
Quarter: 2018Q4

REPORT INFORMATION
  Report Type: Spontaneous
  Country: US (occurrence: US)
  Receive Date: 20180723
  Receipt Date: 20181108
  Transmission Date: 20190204
  Serious: Yes (Hospitalization, Other)
  Sender: FDA-Public Use
  Company Number: US-PFIZER INC-2018296100

PATIENT
  Age: 66 Year
  Sex: Female
  Weight: 66.67 kg

DRUGS (2)
  1. IBRANCE [Suspect]
     Active Substance: PALBOCICLIB
     Indication: BREAST CANCER METASTATIC
     Dosage: 125 MG, CYCLIC [DAY 1-21 Q 28 DAYS]
     Route: 048
     Dates: start: 20180712
  2. IBRANCE [Suspect]
     Active Substance: PALBOCICLIB
     Dosage: 125 MG, CYCLIC [DAY 1-21 Q 28 DAYS]
     Route: 048
     Dates: start: 2018

REACTIONS (11)
  - Malaise [Unknown]
  - Nausea [Not Recovered/Not Resolved]
  - Dyspnoea [Unknown]
  - Osteoporosis [Unknown]
  - Diabetes mellitus [Unknown]
  - Neoplasm progression [Unknown]
  - Gait inability [Unknown]
  - Weight decreased [Unknown]
  - Abdominal discomfort [Unknown]
  - Coma [Unknown]
  - Bone pain [Unknown]

NARRATIVE: CASE EVENT DATE: 2018
